FAERS Safety Report 9841954 (Version 1)
Quarter: 2013Q4

REPORT INFORMATION
  Report Type: Spontaneous
  Country: US (occurrence: None)
  Receive Date: 20131219
  Receipt Date: 20131219
  Transmission Date: 20140711
  Serious: Yes (Hospitalization)
  Sender: FDA-Public Use
  Company Number: 163-20785-12123446

PATIENT
  Age: 84 Year
  Sex: Male
  Weight: 61.8 kg

DRUGS (5)
  1. THALOMID (THALIDOMIDE) (50 MILLIGRAM, CAPSULES) [Suspect]
     Indication: MYELOFIBROSIS
     Route: 048
     Dates: start: 20121222, end: 20121226
  2. NITRO (GLYCERYL TRINITRATE) [Concomitant]
  3. PREDNISONE TAPER (PREDNISONE) [Concomitant]
  4. ASPIRIN (ACETYLSALICYLIC ACID) [Concomitant]
  5. PLAVIX (CLOPIDOGREL SULFATE) [Concomitant]

REACTIONS (2)
  - Myocardial infarction [None]
  - Cardiac failure congestive [None]
